FAERS Safety Report 9258152 (Version 1)
Quarter: 2013Q2

REPORT INFORMATION
  Report Type: Report from Study
  Country: US (occurrence: US)
  Receive Date: 20130426
  Receipt Date: 20130426
  Transmission Date: 20140414
  Serious: Yes (Other)
  Sender: FDA-Public Use
  Company Number: US-PURDUE-USA-2013-0101302

PATIENT
  Age: 46 Year
  Sex: Female
  Weight: 93.1 kg

DRUGS (11)
  1. OXYCODONE HCL IMMEDIATE RELEASE (91-490) [Suspect]
     Indication: PAIN
     Dosage: 50-60 MG DAILY
     Dates: start: 20120109, end: 20120113
  2. TYVASO [Suspect]
     Indication: PULMONARY ARTERIAL HYPERTENSION
     Dosage: 288 MCG, DAILY
     Route: 055
     Dates: start: 20101212
  3. SILDENAFIL [Suspect]
     Indication: PULMONARY ARTERIAL HYPERTENSION
     Dosage: 60 MG, DAILY
     Route: 048
     Dates: start: 20101010
  4. BENADRYL /00000402/ [Suspect]
     Indication: INSOMNIA
     Dosage: 50 MG, UNK
     Route: 048
     Dates: start: 20101008
  5. ATIVAN [Suspect]
     Indication: ANXIETY
     Dosage: 3 MG, UNK
     Route: 048
     Dates: start: 20101024
  6. CITALOPRAM [Concomitant]
     Indication: DEPRESSION
     Dosage: 20 MG, UNK
     Route: 048
     Dates: start: 20101010
  7. NEXIUM                             /01479302/ [Concomitant]
     Indication: GASTROOESOPHAGEAL REFLUX DISEASE
     Dosage: 40 MG, UNK
     Route: 048
     Dates: start: 20101005
  8. HYDROXYCHLOROQUINE [Concomitant]
     Indication: GASTROOESOPHAGEAL REFLUX DISEASE
     Dosage: 400 MG, UNK
     Route: 048
  9. COUMADIN                           /00014802/ [Concomitant]
     Indication: PULMONARY ARTERIAL HYPERTENSION
     Dosage: UNK
     Route: 048
     Dates: start: 20101025
  10. ABILIFY [Concomitant]
     Indication: BIPOLAR DISORDER
     Dosage: 5 MG, UNK
     Route: 048
     Dates: start: 20101010
  11. TEMAZEPAM [Concomitant]
     Indication: BIPOLAR DISORDER
     Dosage: 30 MG, UNK
     Route: 048
     Dates: start: 20101008

REACTIONS (8)
  - Cardiac arrest [Recovered/Resolved]
  - Hypoxia [Unknown]
  - Encephalopathy [Unknown]
  - Mania [Unknown]
  - Malaise [Unknown]
  - Pyrexia [Unknown]
  - Confusional state [Unknown]
  - Headache [Unknown]
